FAERS Safety Report 10243060 (Version 1)
Quarter: 2014Q2

REPORT INFORMATION
  Report Type: Report from Study
  Country: US (occurrence: None)
  Receive Date: 20140613
  Receipt Date: 20140613
  Transmission Date: 20141212
  Serious: Yes (Hospitalization, Other)
  Sender: FDA-Public Use
  Company Number: AUR-APL-2014-06322

PATIENT
  Age: 56 Year
  Sex: Female
  Weight: 73 kg

DRUGS (23)
  1. LISINOPRIL [Suspect]
     Indication: CARDIAC DISORDER
     Route: 048
     Dates: start: 2006
  2. ATENOLOL [Suspect]
     Indication: CARDIAC DISORDER
     Route: 048
  3. MORPHINE SULFATE (MORPHINE SULFATE) INJECTION [Suspect]
     Indication: PAIN
     Route: 048
  4. MORPHINE SULFATE (MORPHINE SULFATE) INJECTION [Suspect]
     Indication: CARDIAC DISORDER
     Route: 048
  5. NEXIUM [Suspect]
     Indication: GASTROOESOPHAGEAL REFLUX DISEASE
     Route: 048
     Dates: start: 2001
  6. PRILOSEC (OMEPRAZOLE) [Suspect]
     Indication: GASTROOESOPHAGEAL REFLUX DISEASE
     Route: 048
     Dates: start: 1995, end: 2001
  7. NITROGLYCERIN (GLYCERYL TRINITRATE) [Concomitant]
  8. PRAVASTATIN (PRAVASTATIN) [Concomitant]
  9. XANAX (ALPRAZOLAM) [Concomitant]
  10. CARAFATE (SUCRALFATE) [Concomitant]
  11. ZOFRAN (ONDANSETRON) [Concomitant]
  12. CALCITONIN, SALMON (CALCITONIN, SALMON) [Concomitant]
  13. AMBIEN (ZOLPIDEM TARTRATE) [Concomitant]
  14. GABAPENTIN (GABAPENTIN) [Concomitant]
  15. CIPROFLOXACIN (CIPROFLOXACIN) [Concomitant]
  16. FUROSEMIDE (FUROSEMIDE) [Concomitant]
  17. POTASSIUM (POTASSIUM) [Concomitant]
  18. ISOSORBIDE (ISOSORBIDE) [Concomitant]
  19. OXYBUTIN (OXYBUTYNIN HYDROCHLORIDE) [Concomitant]
  20. PHENYTOIN (PHENYTOIN) [Concomitant]
  21. CARVEDILOL (CARVEDILOL) [Concomitant]
  22. PREMARIN (ESTROGENS CONJUGATED) CREAM [Concomitant]
  23. SOMA (CARISOPRODOL) [Concomitant]

REACTIONS (23)
  - Dizziness [None]
  - Hypotension [None]
  - Myocardial infarction [None]
  - Multiple fractures [None]
  - Spinal fracture [None]
  - Rib fracture [None]
  - Radius fracture [None]
  - Cardiomyopathy [None]
  - Cardiac disorder [None]
  - Blood potassium decreased [None]
  - Intracardiac thrombus [None]
  - Insomnia [None]
  - Visual acuity reduced [None]
  - Weight decreased [None]
  - Body height decreased [None]
  - Muscle atrophy [None]
  - Weight increased [None]
  - Bone density increased [None]
  - Aphagia [None]
  - Migraine [None]
  - Oesophageal disorder [None]
  - Oesophageal pain [None]
  - Off label use [None]
